FAERS Safety Report 15405886 (Version 1)
Quarter: 2018Q3

REPORT INFORMATION
  Report Type: Spontaneous
  Country: US (occurrence: US)
  Receive Date: 20180920
  Receipt Date: 20180920
  Transmission Date: 20181010
  Serious: Yes (Other)
  Sender: FDA-Public Use
  Company Number: US-TEVA-2018-US-921826

PATIENT
  Age: 35 Year
  Sex: Male

DRUGS (2)
  1. PRAZOSIN. [Suspect]
     Active Substance: PRAZOSIN
     Indication: POST-TRAUMATIC STRESS DISORDER
     Dosage: PER NIGHT SCHEDULE; TWO MONTHS BEFORE HIS PRESENTATION, THE DOSE WAS TITRATED
     Route: 065
  2. SERTRALINE [Interacting]
     Active Substance: SERTRALINE HYDROCHLORIDE
     Indication: POST-TRAUMATIC STRESS DISORDER
     Dosage: TWO MONTHS BEFORE HIS PRESENTATION, THE DOSE WAS TITRATED
     Route: 065

REACTIONS (3)
  - Off label use [Recovered/Resolved]
  - Drug interaction [Recovered/Resolved]
  - Priapism [Recovered/Resolved]
